FAERS Safety Report 23584787 (Version 1)
Quarter: 2024Q1

REPORT INFORMATION
  Report Type: Spontaneous
  Country: CA (occurrence: CA)
  Receive Date: 20240301
  Receipt Date: 20240301
  Transmission Date: 20240409
  Serious: Yes (Other)
  Sender: FDA-Public Use
  Company Number: CA-TEVA-VS-3161267

PATIENT
  Sex: Male

DRUGS (1)
  1. SOLIFENACIN SUCCINATE [Suspect]
     Active Substance: SOLIFENACIN SUCCINATE
     Indication: Product used for unknown indication
     Route: 065

REACTIONS (5)
  - Angle closure glaucoma [Unknown]
  - Eye pain [Unknown]
  - Intraocular pressure increased [Unknown]
  - Libido decreased [Unknown]
  - Retrograde ejaculation [Unknown]
